FAERS Safety Report 9896725 (Version 1)
Quarter: 2014Q1

REPORT INFORMATION
  Report Type: Spontaneous
  Country: US (occurrence: US)
  Receive Date: 20140213
  Receipt Date: 20140213
  Transmission Date: 20141002
  Serious: No
  Sender: FDA-Public Use
  Company Number: US-BRISTOL-MYERS SQUIBB COMPANY-19167774

PATIENT
  Age: 57 Year
  Sex: Female
  Weight: 122.45 kg

DRUGS (2)
  1. ORENCIA [Suspect]
     Indication: RHEUMATOID ARTHRITIS
     Route: 042
     Dates: start: 20130731
  2. BENADRYL [Concomitant]

REACTIONS (4)
  - Pain [Unknown]
  - Cough [Unknown]
  - Fatigue [Unknown]
  - Somnolence [Unknown]
